FAERS Safety Report 19477858 (Version 12)
Quarter: 2024Q4

REPORT INFORMATION
  Report Type: Report from Study
  Country: DE (occurrence: DE)
  Receive Date: 20210630
  Receipt Date: 20241122
  Transmission Date: 20250114
  Serious: No
  Sender: ROCHE
  Company Number: DE-ROCHE-2858367

PATIENT
  Age: 45 Year
  Sex: Female

DRUGS (4)
  1. OCREVUS [Suspect]
     Active Substance: OCRELIZUMAB
     Indication: Multiple sclerosis
     Dosage: 600 MG 189 DAYS
     Route: 042
     Dates: start: 20210309
  2. ISOTRETINOIN [Concomitant]
     Active Substance: ISOTRETINOIN
  3. SPASMEX (GERMANY) [Concomitant]
  4. BACLOFEN [Concomitant]
     Active Substance: BACLOFEN

REACTIONS (21)
  - COVID-19 [Not Recovered/Not Resolved]
  - Gait disturbance [Not Recovered/Not Resolved]
  - Fall [Unknown]
  - Haematoma [Not Recovered/Not Resolved]
  - Pulpitis dental [Recovered/Resolved]
  - Nasopharyngitis [Not Recovered/Not Resolved]
  - Cough [Not Recovered/Not Resolved]
  - Pain in jaw [Recovered/Resolved]
  - Pulpitis dental [Recovered/Resolved]
  - Cystitis noninfective [Not Recovered/Not Resolved]
  - Pyelitis [Recovered/Resolved]
  - Rosacea [Not Recovered/Not Resolved]
  - Paranasal cyst [Recovered/Resolved]
  - Sinus pain [Recovered/Resolved]
  - Muscle spasticity [Recovered/Resolved]
  - Bladder disorder [Recovered/Resolved]
  - Chills [Recovered/Resolved]
  - Tachycardia [Recovered/Resolved]
  - Blood pressure decreased [Recovered/Resolved]
  - Nausea [Recovered/Resolved]
  - Vomiting [Recovered/Resolved]

NARRATIVE: CASE EVENT DATE: 20210507
